FAERS Safety Report 5999410-0 (Version None)
Quarter: 2008Q4

REPORT INFORMATION
  Report Type: 
  Country: None (occurrence: None)
  Receive Date: 20081211
  Receipt Date: 20081126
  Transmission Date: 20090506
  Serious: Yes (Death, Hospitalization)
  Sender: FDA-Public Use
  Company Number: 08-001943

PATIENT
  Age: 23 Year
  Sex: Male
  Weight: 67 kg

DRUGS (4)
  1. DORYX [Suspect]
  2. COLCHICINE (COLCHICINE) [Suspect]
     Dosage: 0.6 MG, 80-100 TABLETS, ORAL
     Route: 048
  3. THYROID HORMONES () [Suspect]
  4. HYPOGLYCEMIC AGENT () [Suspect]

REACTIONS (15)
  - ACIDOSIS [None]
  - BODY TEMPERATURE INCREASED [None]
  - DRUG TOXICITY [None]
  - DYSPNOEA [None]
  - HAEMODIALYSIS [None]
  - MULTI-ORGAN FAILURE [None]
  - MULTIPLE DRUG OVERDOSE INTENTIONAL [None]
  - NEUROPATHY PERIPHERAL [None]
  - PANCREATITIS [None]
  - PLEURAL EFFUSION [None]
  - PULMONARY OEDEMA [None]
  - SUICIDE ATTEMPT [None]
  - URINE OUTPUT DECREASED [None]
  - VOMITING [None]
  - WHITE BLOOD CELL COUNT INCREASED [None]
